FAERS Safety Report 10028977 (Version 3)
Quarter: 2015Q4

REPORT INFORMATION
  Report Type: Spontaneous
  Country: IN (occurrence: IN)
  Receive Date: 20140321
  Receipt Date: 20151204
  Transmission Date: 20160304
  Serious: Yes (Hospitalization)
  Sender: FDA-Public Use
  Company Number: PHHY2014IN032993

PATIENT
  Age: 53 Year
  Sex: Male

DRUGS (5)
  1. NORMAL SALINE [Concomitant]
     Active Substance: SODIUM CHLORIDE
     Indication: PRODUCT USED FOR UNKNOWN INDICATION
     Route: 042
  2. ONDANSETRON [Concomitant]
     Active Substance: ONDANSETRON
     Indication: ANTIEMETIC SUPPORTIVE CARE
     Route: 065
  3. ACETAMINOPHEN. [Concomitant]
     Active Substance: ACETAMINOPHEN
     Indication: ANTIPYRESIS
     Route: 065
  4. DICLOFENAC [Suspect]
     Active Substance: DICLOFENAC
     Indication: PANCREATITIS CHRONIC
     Route: 065
  5. TRAMADOL. [Concomitant]
     Active Substance: TRAMADOL
     Indication: ANALGESIC THERAPY
     Route: 065

REACTIONS (10)
  - Tenderness [Recovered/Resolved]
  - Erythema [Recovered/Resolved]
  - Skin erosion [Recovered/Resolved]
  - Ulcer [Recovered/Resolved]
  - Pain [Recovered/Resolved]
  - Drug eruption [Recovered/Resolved with Sequelae]
  - Scab [Recovered/Resolved]
  - Skin plaque [Recovered/Resolved]
  - Rash pruritic [Recovered/Resolved]
  - Mouth ulceration [Recovered/Resolved]
